FAERS Safety Report 8543251-7 (Version None)
Quarter: 2012Q3

REPORT INFORMATION
  Report Type: 
  Country: None (occurrence: None)
  Receive Date: 20120727
  Receipt Date: 20120723
  Transmission Date: 20120928
  Serious: Yes (Death, Life-Threatening)
  Sender: FDA-Public Use
  Company Number: TW-CELGENEUS-153-CCAZA-12030474

PATIENT
  Sex: Male
  Weight: 53.5 kg

DRUGS (85)
  1. AZACITIDINE [Suspect]
     Indication: ACUTE MYELOID LEUKAEMIA
     Dosage: 75 MILLIGRAM/SQ. METER
     Route: 058
     Dates: start: 20111216, end: 20111222
  2. CODEINE SULFATE [Concomitant]
     Dosage: 30 MILLIGRAM
     Route: 048
     Dates: start: 20120212, end: 20120214
  3. LEVOFLOXACIN [Concomitant]
     Dosage: 500 MILLIGRAM
     Route: 041
     Dates: start: 20120213, end: 20120223
  4. SODIUM CHLORIDE [Concomitant]
     Dosage: 500 CC
     Route: 041
     Dates: start: 20120217, end: 20120218
  5. AMINOL-V [Concomitant]
     Route: 041
     Dates: start: 20120204, end: 20120207
  6. AMINOL-V [Concomitant]
     Route: 041
     Dates: start: 20120220, end: 20120223
  7. LASIX [Concomitant]
     Dosage: 1 AMP/20MG/2ML
     Route: 041
     Dates: start: 20120204, end: 20120205
  8. COLISTIN SULFATE [Concomitant]
     Route: 065
     Dates: start: 20120205, end: 20120206
  9. TRANSAMINE CAP [Concomitant]
     Dosage: 1 AMP
     Route: 041
     Dates: start: 20120214, end: 20120215
  10. KATIMIN [Concomitant]
     Dosage: 1 AMP
     Route: 041
     Dates: start: 20120214, end: 20120215
  11. LIPOVENOES [Concomitant]
     Dosage: 1 BOT
     Route: 041
     Dates: start: 20120214, end: 20120220
  12. LEVOFLOXACIN [Concomitant]
     Indication: NEUTROPENIA
     Dosage: 750 MILLIGRAM
     Route: 041
     Dates: start: 20120127, end: 20120210
  13. LEVOFLOXACIN [Concomitant]
     Dosage: 500 MILLIGRAM
     Route: 041
     Dates: start: 20120213, end: 20120214
  14. SODIUM CHLORIDE [Concomitant]
     Dosage: 500 CC
     Route: 041
     Dates: start: 20120130, end: 20120131
  15. SEROQUEL [Concomitant]
     Dosage: 0.5
     Route: 048
     Dates: start: 20120130, end: 20120131
  16. SEROQUEL [Concomitant]
     Dosage: 25 MILLIGRAM
     Route: 048
     Dates: start: 20120131, end: 20120212
  17. POTASSIUM CHLORIDE [Concomitant]
     Dosage: 20 CC
     Route: 041
     Dates: start: 20120217, end: 20120218
  18. POTASSIUM CHLORIDE [Concomitant]
     Dosage: 20 CC
     Route: 041
     Dates: start: 20120220, end: 20120220
  19. LASIX [Concomitant]
     Dosage: 1 AMP/20MG/2ML
     Route: 041
     Dates: start: 20120206, end: 20120207
  20. LASIX [Concomitant]
     Dosage: 1 AMP/20MG/2ML
     Route: 041
     Dates: start: 20120222, end: 20120223
  21. ALLEGRA [Concomitant]
     Route: 048
     Dates: start: 20120208, end: 20120218
  22. SOLU-CORTEF [Concomitant]
     Dosage: 100 MILLIGRAM
     Route: 041
     Dates: start: 20120215, end: 20120216
  23. PONCOLIN [Concomitant]
     Dosage: X1 BOT
     Route: 048
     Dates: start: 20120217, end: 20120218
  24. DOXABEN [Concomitant]
     Dosage: 2 MILLIGRAM
     Route: 048
     Dates: start: 20120130, end: 20120212
  25. CODEINE SULFATE [Concomitant]
     Dosage: 30 MILLIGRAM
     Route: 048
     Dates: start: 20120206, end: 20120207
  26. ASTOMIN [Concomitant]
     Dosage: 10 MILLIGRAM
     Route: 048
     Dates: start: 20120206, end: 20120207
  27. MYCAMINE [Concomitant]
     Dosage: 100 MILLIGRAM
     Route: 041
     Dates: start: 20120130, end: 20120213
  28. POTASSIUM CHLORIDE [Concomitant]
     Dosage: 10 CC
     Route: 041
     Dates: start: 20120201, end: 20120202
  29. POTASSIUM CHLORIDE [Concomitant]
     Dosage: 20 CC
     Route: 041
     Dates: start: 20120201, end: 20120203
  30. LASIX [Concomitant]
     Dosage: 1 AMP/20MG/2ML
     Route: 041
     Dates: start: 20120214, end: 20120215
  31. LASIX [Concomitant]
     Dosage: 0.5 AMP/20MG/2ML
     Route: 041
     Dates: start: 20120220, end: 20120221
  32. COLISTIN SULFATE [Concomitant]
     Route: 065
     Dates: start: 20120205, end: 20120213
  33. ALBUMIN (HUMAN) [Concomitant]
     Dosage: 1 BOTTLE
     Route: 041
     Dates: start: 20120207, end: 20120210
  34. SOLU-CORTEF [Concomitant]
     Dosage: 100 MILLIGRAM
     Route: 041
     Dates: start: 20120211, end: 20120212
  35. TRANSAMINE CAP [Concomitant]
     Dosage: 1 AMP
     Route: 041
     Dates: start: 20120213, end: 20120218
  36. ZINC OXIDE [Concomitant]
     Dosage: X1 TUB
     Dates: start: 20120216, end: 20120223
  37. VITAGEN [Concomitant]
     Dosage: 250CC
     Route: 041
     Dates: start: 20120222, end: 20120223
  38. SOLU-MEDROL [Concomitant]
     Dosage: 125 MILLIGRAM
     Route: 041
     Dates: start: 20120222, end: 20120223
  39. CODEINE SULFATE [Concomitant]
     Dosage: 30 MILLIGRAM
     Route: 048
     Dates: start: 20120206, end: 20120212
  40. LEVOFLOXACIN [Concomitant]
     Dosage: 750 MILLIGRAM
     Route: 041
     Dates: start: 20120127, end: 20120128
  41. NEXIUM [Concomitant]
     Route: 041
     Dates: start: 20120201, end: 20120202
  42. DISOLIN [Concomitant]
     Dosage: 0.5 AMP
     Route: 041
     Dates: start: 20120216, end: 20120223
  43. CODEINE SULFATE [Concomitant]
     Dosage: 60 MILLIGRAM
     Route: 048
     Dates: start: 20120130, end: 20120206
  44. TRAMADOL HYDROCHLORIDE [Concomitant]
     Dosage: 0.5 AMP
     Route: 041
     Dates: start: 20120124, end: 20120206
  45. LIPOFUNDIN MCT/LCT [Concomitant]
     Dosage: 1 BOT
     Route: 041
     Dates: start: 20120124, end: 20120203
  46. DEXTROSE [Concomitant]
     Dosage: 1000 CC
     Route: 041
     Dates: start: 20120130, end: 20120212
  47. NEXIUM [Concomitant]
     Dosage: 1 TAB
     Route: 048
     Dates: start: 20120204, end: 20120215
  48. SOLU-CORTEF [Concomitant]
     Dosage: 100 MILLIGRAM
     Route: 041
     Dates: start: 20120219, end: 20120221
  49. SOLU-CORTEF [Concomitant]
     Dosage: 100 MILLIGRAM
     Route: 041
     Dates: start: 20120221, end: 20120222
  50. TRANSAMINE CAP [Concomitant]
     Dosage: 2 AMP
     Route: 041
     Dates: start: 20120218, end: 20120223
  51. TYGACIL [Concomitant]
     Indication: NEUTROPENIA
     Route: 041
     Dates: start: 20120213, end: 20120223
  52. COMBIVENT [Concomitant]
     Dosage: 1 VIAL
     Route: 030
     Dates: start: 20120222, end: 20120222
  53. ALLERMIN [Concomitant]
     Dosage: 1 AMP
     Route: 041
     Dates: start: 20120122, end: 20120223
  54. DOXABEN [Concomitant]
     Dosage: 2 MILLIGRAM
     Route: 048
     Dates: start: 20120123, end: 20120124
  55. ASTOMIN [Concomitant]
     Dosage: 10 MILLIGRAM
     Route: 048
     Dates: start: 20120123, end: 20120124
  56. ASTOMIN [Concomitant]
     Dosage: 10 MILLIGRAM
     Route: 048
     Dates: start: 20120127, end: 20120210
  57. MESYREL [Concomitant]
     Route: 048
     Dates: start: 20120129, end: 20120130
  58. NYSTATIN [Concomitant]
     Dosage: 1 CAP
     Route: 048
     Dates: start: 20120130, end: 20120223
  59. NEXIUM [Concomitant]
     Route: 041
     Dates: start: 20120201, end: 20120203
  60. SOLU-CORTEF [Concomitant]
     Dosage: 100 MILLIGRAM
     Route: 041
     Dates: start: 20120211, end: 20120213
  61. SOLU-CORTEF [Concomitant]
     Dosage: 100 MILLIGRAM
     Route: 041
     Dates: start: 20120214, end: 20120215
  62. SOLU-CORTEF [Concomitant]
     Dosage: 100 MILLIGRAM
     Route: 041
     Dates: start: 20120222, end: 20120223
  63. DEPYRETIN [Concomitant]
     Dosage: 1 TAB
     Route: 048
     Dates: start: 20120219, end: 20120223
  64. AZACITIDINE [Suspect]
     Dosage: 50 MILLIGRAM/SQ. METER
     Route: 058
     Dates: start: 20120206, end: 20120212
  65. CODEINE SULFATE [Concomitant]
     Dosage: 60 MILLIGRAM
     Route: 048
     Dates: start: 20120123, end: 20120124
  66. SODIUM CHLORIDE [Concomitant]
     Dosage: 500 CC
     Route: 041
     Dates: start: 20120216, end: 20120217
  67. MEPAM [Concomitant]
     Dosage: 1000 MILLIGRAM
     Route: 041
     Dates: start: 20120130, end: 20120213
  68. SENOKOT [Concomitant]
     Dosage: 15 MILLIGRAM
     Route: 048
     Dates: start: 20120131, end: 20120212
  69. HEPAN [Concomitant]
     Dosage: 0.5 TAB
     Route: 048
     Dates: start: 20120204, end: 20120212
  70. FLUR DI FEN [Concomitant]
     Dosage: X4
     Route: 065
     Dates: start: 20120210, end: 20120217
  71. NEOMYCIN SULFATE TAB [Concomitant]
     Dosage: X1 TUB
     Route: 065
     Dates: start: 20120212, end: 20120223
  72. LIPOVENOES [Concomitant]
     Dosage: 1 BOT
     Route: 041
     Dates: start: 20120214, end: 20120214
  73. LEVOPHED [Concomitant]
     Dosage: 2 AMP
     Route: 041
     Dates: start: 20120222, end: 20120223
  74. DOPAMINE HYDROCHLORIDE [Concomitant]
     Dosage: 400 MILLIGRAM
     Route: 041
     Dates: start: 20120223, end: 20120223
  75. DOXABEN [Concomitant]
     Dosage: 2 MILLIGRAM
     Route: 048
     Dates: start: 20120206, end: 20120207
  76. SENOKOT [Concomitant]
     Dosage: 15 MILLIGRAM
     Route: 048
     Dates: start: 20120212, end: 20120215
  77. NEXIUM [Concomitant]
     Dosage: 1 TAB
     Route: 048
     Dates: start: 20120204, end: 20120205
  78. POTASSIUM CHLORIDE [Concomitant]
     Dosage: 20 CC
     Route: 041
     Dates: start: 20120217, end: 20120220
  79. SOLU-CORTEF [Concomitant]
     Dosage: 50 MILLIGRAM
     Route: 041
     Dates: start: 20120216, end: 20120217
  80. EPINEPHRINE [Concomitant]
     Dosage: 1 AMP
     Route: 065
     Dates: start: 20120213, end: 20120223
  81. TYGACIL [Concomitant]
     Dosage: 100 MILLIGRAM
     Route: 041
     Dates: start: 20120213, end: 20120214
  82. BININ-U [Concomitant]
     Dosage: 0.5 TAB
     Route: 048
     Dates: start: 20120216, end: 20120223
  83. MEGEST [Concomitant]
     Dosage: X1 BOT
     Route: 048
     Dates: start: 20120218, end: 20120219
  84. VITAGEN [Concomitant]
     Dosage: 250CC
     Route: 041
     Dates: start: 20120222, end: 20120222
  85. MORPHINE HCL [Concomitant]
     Dosage: 10 MILLIGRAM
     Route: 041
     Dates: start: 20120222, end: 20120223

REACTIONS (2)
  - NEUTROPENIA [None]
  - PNEUMONIA [None]
